FAERS Safety Report 13520018 (Version 2)
Quarter: 2017Q3

REPORT INFORMATION
  Report Type: Report from Study
  Country: CA (occurrence: CA)
  Receive Date: 20170506
  Receipt Date: 20170724
  Transmission Date: 20171127
  Serious: Yes (Other)
  Sender: FDA-Public Use
  Company Number: CA-BRISTOL-MYERS SQUIBB COMPANY-BMS-2017-037721

PATIENT
  Age: 65 Year
  Sex: Female

DRUGS (1)
  1. ABATACEPT [Suspect]
     Active Substance: ABATACEPT
     Indication: RHEUMATOID ARTHRITIS
     Dosage: 125 MG, QWK
     Route: 058
     Dates: start: 20161208, end: 20170717

REACTIONS (10)
  - Muscle spasms [Not Recovered/Not Resolved]
  - Nail operation [Unknown]
  - Diabetes mellitus [Unknown]
  - Drug ineffective [Unknown]
  - Peripheral swelling [Unknown]
  - Headache [Not Recovered/Not Resolved]
  - Vomiting [Not Recovered/Not Resolved]
  - Poor quality sleep [Unknown]
  - Nail infection [Recovering/Resolving]
  - Pain in extremity [Unknown]

NARRATIVE: CASE EVENT DATE: 20170424
